FAERS Safety Report 19460193 (Version 1)
Quarter: 2021Q2

REPORT INFORMATION
  Report Type: Spontaneous
  Country: CZ (occurrence: CZ)
  Receive Date: 20210625
  Receipt Date: 20210625
  Transmission Date: 20210717
  Serious: Yes (Death, Life-Threatening, Other)
  Sender: FDA-Public Use
  Company Number: CZ-AUROBINDO-AUR-APL-2021-026268

PATIENT
  Age: 34 Year
  Sex: Female

DRUGS (4)
  1. SUMATRIPTAN. [Suspect]
     Active Substance: SUMATRIPTAN
     Indication: HEADACHE
     Dosage: UNK
     Route: 065
  2. CINARIZINE [Suspect]
     Active Substance: CINNARIZINE
     Indication: MIGRAINE
     Dosage: UNK
     Route: 065
  3. CIPRALEX [Interacting]
     Active Substance: ESCITALOPRAM OXALATE
     Indication: ANXIETY DISORDER
     Dosage: UNK
     Route: 065
  4. ATENOBENE [Suspect]
     Active Substance: ATENOLOL
     Indication: HYPERTENSION
     Dosage: UNK
     Route: 065

REACTIONS (10)
  - Potentiating drug interaction [Unknown]
  - Overdose [Unknown]
  - Chest pain [Unknown]
  - Exposure during pregnancy [Unknown]
  - Dyspnoea [Unknown]
  - Loss of consciousness [Unknown]
  - Cyanosis [Unknown]
  - Aortic dissection [Fatal]
  - Serotonin syndrome [Unknown]
  - Hypertension [Unknown]
